FAERS Safety Report 4839074-2 (Version None)
Quarter: 2005Q4

REPORT INFORMATION
  Report Type: 
  Country: None (occurrence: None)
  Receive Date: 20051128
  Receipt Date: 20051128
  Transmission Date: 20060501
  Serious: Yes (Hospitalization, Other)
  Sender: FDA-Public Use
  Company Number: None

PATIENT
  Sex: Male
  Weight: 45.7 kg

DRUGS (10)
  1. CYTARABINE [Suspect]
     Indication: ACUTE MYELOID LEUKAEMIA
     Dosage: SEE IMAGE
     Dates: start: 20051107, end: 20051112
  2. CYTARABINE [Suspect]
     Indication: ACUTE MYELOID LEUKAEMIA
     Dosage: SEE IMAGE
     Dates: start: 20051107
  3. BACTRIM [Concomitant]
  4. COLOXYL WITH SENNA [Concomitant]
  5. NEUPOGEN [Concomitant]
  6. LOSEC [Concomitant]
  7. MAXOLON [Concomitant]
  8. ONDANSETRON [Concomitant]
  9. PARACETAMOL [Concomitant]
  10. SYMBICORT [Concomitant]

REACTIONS (13)
  - ABDOMINAL PAIN LOWER [None]
  - ABDOMINAL TENDERNESS [None]
  - ANAEMIA [None]
  - BACK PAIN [None]
  - BLOOD PRESSURE DECREASED [None]
  - BLOOD PRESSURE DIASTOLIC DECREASED [None]
  - CAECITIS [None]
  - DIZZINESS POSTURAL [None]
  - FATIGUE [None]
  - ILEUS [None]
  - MUSCLE SPASMS [None]
  - PYREXIA [None]
  - THROMBOCYTOPENIA [None]
